FAERS Safety Report 10250921 (Version 1)
Quarter: 2014Q2

REPORT INFORMATION
  Report Type: Spontaneous
  Country: US (occurrence: US)
  Receive Date: 20140620
  Receipt Date: 20140620
  Transmission Date: 20141212
  Serious: Yes (Death, Hospitalization)
  Sender: FDA-Public Use
  Company Number: US-ABBVIE-14P-163-1249982-00

PATIENT
  Age: 60 Year
  Sex: Male

DRUGS (2)
  1. ADALIMUMAB [Suspect]
     Indication: ANKYLOSING SPONDYLITIS
  2. METHOTREXATE [Suspect]
     Indication: ANKYLOSING SPONDYLITIS

REACTIONS (1)
  - Tumour lysis syndrome [Fatal]
